FAERS Safety Report 4636057-2 (Version None)
Quarter: 2005Q2

REPORT INFORMATION
  Report Type: 
  Country: None (occurrence: None)
  Receive Date: 20050331
  Receipt Date: 20040507
  Transmission Date: 20051028
  Serious: Yes (Other)
  Sender: FDA-Public Use
  Company Number: 200412274BCC

PATIENT
  Sex: Female

DRUGS (2)
  1. ALEVE [Suspect]
     Dosage: 220 MG, QD, ORAL
     Route: 048
     Dates: start: 20040501, end: 20040502
  2. ASPIRIN [Concomitant]

REACTIONS (2)
  - BLOOD PRESSURE SYSTOLIC INCREASED [None]
  - BLOOD URINE PRESENT [None]
